FAERS Safety Report 23069126 (Version 3)
Quarter: 2024Q2

REPORT INFORMATION
  Report Type: Report from Study
  Country: US (occurrence: US)
  Receive Date: 20231016
  Receipt Date: 20240426
  Transmission Date: 20240715
  Serious: Yes (Other)
  Sender: FDA-Public Use
  Company Number: US-ARGENX-2023-ARGX-US002189

PATIENT

DRUGS (3)
  1. VYVGART [Suspect]
     Active Substance: EFGARTIGIMOD ALFA-FCAB
     Indication: Myasthenia gravis
     Dosage: 10 MG/KG
     Route: 042
  2. MESTINON [Suspect]
     Active Substance: PYRIDOSTIGMINE BROMIDE
     Indication: Product used for unknown indication
     Route: 065
  3. MESTINON [Suspect]
     Active Substance: PYRIDOSTIGMINE BROMIDE
     Dosage: INCREASED DOSE
     Route: 065

REACTIONS (18)
  - Choking [Not Recovered/Not Resolved]
  - Choking [Unknown]
  - Dysphagia [Unknown]
  - Therapy non-responder [Unknown]
  - Visual impairment [Unknown]
  - Chromaturia [Recovered/Resolved]
  - Heart rate decreased [Unknown]
  - Electrocardiogram abnormal [Unknown]
  - SARS-CoV-2 test positive [Unknown]
  - Fall [Unknown]
  - Back pain [Unknown]
  - Vision blurred [Not Recovered/Not Resolved]
  - Fall [Unknown]
  - Pain [Unknown]
  - Cough [Unknown]
  - Dysphagia [Unknown]
  - Illness [Unknown]
  - Nasopharyngitis [Unknown]

NARRATIVE: CASE EVENT DATE: 20230805
